FAERS Safety Report 6862373-X (Version None)
Quarter: 2010Q3

REPORT INFORMATION
  Report Type: 
  Country: None (occurrence: None)
  Receive Date: 20100716
  Receipt Date: 20100701
  Transmission Date: 20110219
  Serious: Yes (Hospitalization)
  Sender: FDA-Public Use
  Company Number: 013307

PATIENT
  Sex: Male
  Weight: 92.5 kg

DRUGS (16)
  1. CERTOLIZUMAB PEGOL (CERTOLIZUMAB PEGOL) [Suspect]
     Indication: RHEUMATOID ARTHRITIS
     Dosage: SEE IMAGE
     Route: 058
     Dates: start: 20051214, end: 20060404
  2. CERTOLIZUMAB PEGOL (CERTOLIZUMAB PEGOL) [Suspect]
     Indication: RHEUMATOID ARTHRITIS
     Dosage: SEE IMAGE
     Route: 058
     Dates: start: 20060405, end: 20071212
  3. CERTOLIZUMAB PEGOL (CERTOLIZUMAB PEGOL) [Suspect]
     Indication: RHEUMATOID ARTHRITIS
     Dosage: SEE IMAGE
     Route: 058
     Dates: start: 20071226, end: 20100525
  4. CERTOLIZUMAB PEGOL (CERTOLIZUMAB PEGOL) [Suspect]
     Indication: RHEUMATOID ARTHRITIS
     Dosage: SEE IMAGE
     Route: 058
     Dates: end: 20100603
  5. METHOTREXATE [Concomitant]
  6. NIMESULIDE [Concomitant]
  7. PREDNISOLONE [Concomitant]
  8. INDOMETHACIN [Concomitant]
  9. ACIDUM FOLICUM [Concomitant]
  10. DOXYCYCLINE ARROW [Concomitant]
  11. DIAZOLIN [Concomitant]
  12. AKTIFERRIN [Concomitant]
  13. ISONIAZID [Concomitant]
  14. PARACETAMOL [Concomitant]
  15. CIPROFLOXACIN [Concomitant]
  16. BROMHEXIN [Concomitant]

REACTIONS (9)
  - BORRELIA INFECTION [None]
  - BUNDLE BRANCH BLOCK RIGHT [None]
  - DUODENOGASTRIC REFLUX [None]
  - HIATUS HERNIA [None]
  - LOBAR PNEUMONIA [None]
  - REFLUX GASTRITIS [None]
  - REFLUX OESOPHAGITIS [None]
  - RESPIRATORY FAILURE [None]
  - RESPIRATORY TRACT INFECTION [None]
